FAERS Safety Report 25518222 (Version 1)
Quarter: 2025Q3

REPORT INFORMATION
  Report Type: Spontaneous
  Country: EU (occurrence: EU)
  Receive Date: 20250704
  Receipt Date: 20250704
  Transmission Date: 20251020
  Serious: Yes (Other)
  Sender: AMGEN
  Company Number: None

PATIENT
  Age: 33 Year
  Sex: Male

DRUGS (1)
  1. AIMOVIG [Suspect]
     Active Substance: ERENUMAB-AOOE
     Indication: Migraine prophylaxis
     Dosage: 140 MG, QMO (SOLUTION FOR INJECTION)
     Route: 058
     Dates: start: 20250206, end: 20250502

REACTIONS (9)
  - Erectile dysfunction [Recovering/Resolving]
  - Dyspnoea exertional [Recovering/Resolving]
  - Fatigue [Recovering/Resolving]
  - Arthralgia [Recovering/Resolving]
  - Dyspnoea [Recovering/Resolving]
  - Constipation [Recovered/Resolved]
  - Libido decreased [Recovering/Resolving]
  - Drug ineffective [Unknown]
  - Myalgia [Recovering/Resolving]
